FAERS Safety Report 5227017-1 (Version None)
Quarter: 2007Q1

REPORT INFORMATION
  Report Type: 
  Country: None (occurrence: None)
  Receive Date: 20070130
  Receipt Date: 20070123
  Transmission Date: 20070707
  Serious: Yes (Death, Life-Threatening, Disabling, Other)
  Sender: FDA-Public Use
  Company Number: 200701AGG00569

PATIENT
  Age: 60 Year
  Sex: Female

DRUGS (3)
  1. TIROFIBAN HYDROCHLORIDE (TIROFIBAN HCL (AGGRASTAT)) [Suspect]
     Indication: ACUTE MYOCARDIAL INFARCTION
     Dosage: 0.25 MG/ML INTRAVENOUS
     Route: 042
     Dates: end: 20060727
  2. TIROFIBAN HYDROCHLORIDE (TIROFIBAN HCL (AGGRASTAT)) [Suspect]
     Indication: ANGINA UNSTABLE
     Dosage: 0.25 MG/ML INTRAVENOUS
     Route: 042
     Dates: end: 20060727
  3. DOPAMINE HCL [Concomitant]

REACTIONS (1)
  - CARDIAC ARREST [None]
